FAERS Safety Report 4382418-9 (Version None)
Quarter: 2004Q2

REPORT INFORMATION
  Report Type: 
  Country: None (occurrence: None)
  Receive Date: 20040617
  Receipt Date: 20040608
  Transmission Date: 20050107
  Serious: Yes (Hospitalization)
  Sender: FDA-Public Use
  Company Number: 04P-217-0263491-00

PATIENT
  Sex: Female
  Weight: 97 kg

DRUGS (1)
  1. MERIDIA [Suspect]
     Dosage: 10 MG, 1 IN 1 D, PER ORAL
     Route: 048

REACTIONS (3)
  - DRY MOUTH [None]
  - GALLBLADDER OPERATION [None]
  - ORAL DISCOMFORT [None]
